FAERS Safety Report 17282675 (Version 1)
Quarter: 2020Q1

REPORT INFORMATION
  Report Type: Spontaneous
  Country: US (occurrence: US)
  Receive Date: 20191230
  Receipt Date: 20191230
  Transmission Date: 20200409
  Serious: No
  Sender: FDA-Public Use
  Company Number: None

PATIENT
  Age: 48 Year
  Sex: Female

DRUGS (4)
  1. VERZENIO [Suspect]
     Active Substance: ABEMACICLIB
     Indication: ABDOMINAL PAIN UPPER
  2. VERZENIO [Suspect]
     Active Substance: ABEMACICLIB
     Indication: DIARRHOEA
     Route: 048
     Dates: start: 20191205, end: 20191213
  3. VERZENIO [Suspect]
     Active Substance: ABEMACICLIB
     Indication: DECREASED APPETITE
  4. VERZENIO [Suspect]
     Active Substance: ABEMACICLIB
     Indication: NAUSEA

REACTIONS (4)
  - Abdominal pain upper [None]
  - Diarrhoea [None]
  - Decreased appetite [None]
  - Nausea [None]

NARRATIVE: CASE EVENT DATE: 20191205
